FAERS Safety Report 8052029-2 (Version None)
Quarter: 2012Q1

REPORT INFORMATION
  Report Type: 
  Country: None (occurrence: None)
  Receive Date: 20120118
  Receipt Date: 20120111
  Transmission Date: 20120608
  Serious: Yes (Other)
  Sender: FDA-Public Use
  Company Number: TR-JNJFOC-20120103967

PATIENT

DRUGS (2)
  1. TRAMADOL HCL [Suspect]
     Indication: SEDATION
     Route: 065
  2. PROPOFOL [Suspect]
     Indication: SEDATION
     Route: 065

REACTIONS (1)
  - BRADYCARDIA [None]
